FAERS Safety Report 24417063 (Version 1)
Quarter: 2024Q4

REPORT INFORMATION
  Report Type: Spontaneous
  Country: FR (occurrence: FR)
  Receive Date: 20241009
  Receipt Date: 20241009
  Transmission Date: 20250114
  Serious: Yes (Hospitalization)
  Sender: SANOFI AVENTIS
  Company Number: None

PATIENT
  Age: 66 Year
  Sex: Female
  Weight: 86 kg

DRUGS (20)
  1. PREDNISONE [Suspect]
     Active Substance: PREDNISONE
     Indication: Central nervous system inflammation
     Dosage: 20 MG, QD
     Route: 048
     Dates: start: 20230504
  2. CANDESARTAN CILEXETIL [Suspect]
     Active Substance: CANDESARTAN CILEXETIL
     Dosage: 16 MG, QD
  3. APIXABAN [Suspect]
     Active Substance: APIXABAN
     Dosage: 5 MG, BID
  4. ATORVASTATIN [Suspect]
     Active Substance: ATORVASTATIN
     Dosage: 10 MG, QD
  5. INSULIN ASPART [Suspect]
     Active Substance: INSULIN ASPART
     Dosage: UNK
  6. TOUJEO [Suspect]
     Active Substance: INSULIN GLARGINE
     Dosage: 8 IU, QD
  7. FLUOXETINE [Suspect]
     Active Substance: FLUOXETINE HYDROCHLORIDE
     Dosage: 40 MG, QD
  8. LANSOPRAZOLE [Suspect]
     Active Substance: LANSOPRAZOLE
     Dosage: 30 MG, QD
  9. FOLIC ACID [Suspect]
     Active Substance: FOLIC ACID
     Dosage: 5 MG, QD
  10. CHOLECALCIFEROL [Suspect]
     Active Substance: CHOLECALCIFEROL
     Dosage: 100,000 IU EVERY 28 DAYS
  11. SULFAMETHOXAZOLE\TRIMETHOPRIM [Suspect]
     Active Substance: SULFAMETHOXAZOLE\TRIMETHOPRIM
     Dosage: 400/80 MG IN THE MORNING
  12. CYCLOPHOSPHAMIDE [Suspect]
     Active Substance: CYCLOPHOSPHAMIDE
     Dosage: 700 MG/M2 6 COURSES
     Dates: start: 20230504, end: 20231215
  13. LEVOTHYROXINE SODIUM [Suspect]
     Active Substance: LEVOTHYROXINE SODIUM
     Dosage: 75 UG, QD
  14. CALCIUM CARBONATE\CHOLECALCIFEROL [Suspect]
     Active Substance: CALCIUM CARBONATE\CHOLECALCIFEROL
     Dosage: 500 MG/400 IU
  15. ISONIAZID\RIFAMPIN [Suspect]
     Active Substance: ISONIAZID\RIFAMPIN
     Dosage: UNK
     Dates: start: 20231216
  16. ISONIAZID [Suspect]
     Active Substance: ISONIAZID
     Dosage: UNK
     Dates: start: 20240328, end: 202404
  17. ACETAMINOPHEN [Suspect]
     Active Substance: ACETAMINOPHEN
     Dosage: 1000 MG SB
  18. INFLIXIMAB [Suspect]
     Active Substance: INFLIXIMAB
     Indication: Central nervous system inflammation
     Dosage: 5 MG/KG PAR CYCLE
     Route: 042
     Dates: start: 20240325, end: 20240608
  19. METFORMIN [Suspect]
     Active Substance: METFORMIN HYDROCHLORIDE
     Dosage: 1000 MG, BID
  20. MAGNESIUM [Suspect]
     Active Substance: MAGNESIUM
     Dosage: 47.7 MG, TID

REACTIONS (3)
  - Hepatic steatosis [Recovering/Resolving]
  - Lung disorder [Unknown]
  - Off label use [Unknown]

NARRATIVE: CASE EVENT DATE: 20230504
